FAERS Safety Report 6808550-5 (Version None)
Quarter: 2010Q2

REPORT INFORMATION
  Report Type: 
  Country: None (occurrence: None)
  Receive Date: 20100629
  Receipt Date: 20090822
  Transmission Date: 20101027
  Serious: No
  Sender: FDA-Public Use
  Company Number: US-PFIZER INC-2009232472

PATIENT
  Sex: Female
  Weight: 61 kg

DRUGS (6)
  1. TIKOSYN [Suspect]
     Indication: SUPRAVENTRICULAR TACHYCARDIA
     Dosage: 250 UG, 2X/DAY
     Route: 048
     Dates: start: 20090101
  2. FLUOXETINE [Concomitant]
     Dosage: UNK
  3. COREG [Concomitant]
     Dosage: UNK
  4. ALTACE [Concomitant]
     Dosage: UNK
  5. CUMADIN [Concomitant]
     Dosage: UNK
  6. LEVONORGESTREL [Concomitant]
     Dosage: UNK

REACTIONS (2)
  - ABDOMINAL DISTENSION [None]
  - CONSTIPATION [None]
